FAERS Safety Report 15806271 (Version 4)
Quarter: 2019Q1

REPORT INFORMATION
  Report Type: Spontaneous
  Country: US (occurrence: US)
  Receive Date: 20190110
  Receipt Date: 20190122
  Transmission Date: 20190417
  Serious: No
  Sender: FDA-Public Use
  Company Number: US-PFIZER INC-2018532513

PATIENT
  Age: 72 Year
  Sex: Male
  Weight: 136.8 kg

DRUGS (1)
  1. XELJANZ XR [Suspect]
     Active Substance: TOFACITINIB CITRATE
     Indication: RHEUMATOID ARTHRITIS
     Dosage: 11 MG, 1X/DAY(11MG TABLETS BY MOUTH ONCE DAILY)
     Route: 048
     Dates: start: 201712, end: 201812

REACTIONS (3)
  - Pain in extremity [Unknown]
  - Weight decreased [Unknown]
  - Pain [Unknown]
